FAERS Safety Report 5609255-9 (Version None)
Quarter: 2008Q1

REPORT INFORMATION
  Report Type: 
  Country: None (occurrence: None)
  Receive Date: 20080131
  Receipt Date: 20080125
  Transmission Date: 20080703
  Serious: Yes (Hospitalization)
  Sender: FDA-Public Use
  Company Number: US-GENENTECH-254920

PATIENT
  Age: 45 Year
  Sex: Male

DRUGS (1)
  1. RITUXAN [Suspect]
     Indication: CHRONIC LYMPHOCYTIC LEUKAEMIA
     Dosage: UNK, UNKNOWN
     Route: 042

REACTIONS (1)
  - CONVULSION [None]
